FAERS Safety Report 16403007 (Version 3)
Quarter: 2019Q3

REPORT INFORMATION
  Report Type: Spontaneous
  Country: US (occurrence: US)
  Receive Date: 20190607
  Receipt Date: 20190905
  Transmission Date: 20191004
  Serious: Yes (Hospitalization, Other)
  Sender: FDA-Public Use
  Company Number: US-ASTRAZENECA-2019SE11131

PATIENT
  Age: 53 Year
  Sex: Female
  Weight: 81.6 kg

DRUGS (39)
  1. NEXIUM [Suspect]
     Active Substance: ESOMEPRAZOLE MAGNESIUM
     Indication: GASTROOESOPHAGEAL REFLUX DISEASE
     Dosage: GENERIC
     Route: 048
  2. HYDROCHLOROTHIAZIDE. [Concomitant]
     Active Substance: HYDROCHLOROTHIAZIDE
     Indication: HYPERTENSION
     Route: 065
  3. FUROSEMIDE. [Concomitant]
     Active Substance: FUROSEMIDE
     Indication: FLUID RETENTION
     Route: 065
  4. FOLIC ACID. [Concomitant]
     Active Substance: FOLIC ACID
     Route: 065
  5. NEXIUM [Suspect]
     Active Substance: ESOMEPRAZOLE MAGNESIUM
     Indication: GASTROOESOPHAGEAL REFLUX DISEASE
     Dosage: 1 CAPSULE PER DAY
     Route: 048
  6. PRILOSEC OTC [Suspect]
     Active Substance: OMEPRAZOLE MAGNESIUM
     Indication: GASTROOESOPHAGEAL REFLUX DISEASE
     Route: 048
     Dates: start: 200707
  7. PREVACID [Suspect]
     Active Substance: LANSOPRAZOLE
     Indication: GASTROOESOPHAGEAL REFLUX DISEASE
     Route: 065
  8. BISOPROLOL [Concomitant]
     Active Substance: BISOPROLOL
     Indication: HYPERTENSION
     Route: 065
  9. IBUPROFEN. [Concomitant]
     Active Substance: IBUPROFEN
     Route: 065
  10. PRILOSEC [Suspect]
     Active Substance: OMEPRAZOLE MAGNESIUM
     Indication: GASTROOESOPHAGEAL REFLUX DISEASE
     Dosage: GENERIC
     Route: 048
  11. PROAIR HFA [Concomitant]
     Active Substance: ALBUTEROL SULFATE
  12. LISINOPRIL. [Concomitant]
     Active Substance: LISINOPRIL
     Indication: HYPERTENSION
     Route: 065
  13. NEXIUM [Suspect]
     Active Substance: ESOMEPRAZOLE MAGNESIUM
     Indication: GASTROOESOPHAGEAL REFLUX DISEASE
     Dosage: 1 CAPSULE PER DAY
     Route: 048
  14. NEXIUM [Suspect]
     Active Substance: ESOMEPRAZOLE MAGNESIUM
     Indication: GASTROOESOPHAGEAL REFLUX DISEASE
     Dosage: GENERIC
     Route: 048
  15. PRILOSEC [Suspect]
     Active Substance: OMEPRAZOLE MAGNESIUM
     Indication: GASTROOESOPHAGEAL REFLUX DISEASE
     Route: 048
  16. PROTONIX [Suspect]
     Active Substance: PANTOPRAZOLE SODIUM
     Indication: GASTROOESOPHAGEAL REFLUX DISEASE
     Route: 065
  17. PROTONIX [Suspect]
     Active Substance: PANTOPRAZOLE SODIUM
     Indication: GASTROOESOPHAGEAL REFLUX DISEASE
     Dosage: GENERIC
     Route: 065
  18. VITAMIN D2 [Concomitant]
     Active Substance: ERGOCALCIFEROL
     Route: 065
  19. FAMOTIDINE. [Concomitant]
     Active Substance: FAMOTIDINE
     Route: 065
  20. NEXIUM [Suspect]
     Active Substance: ESOMEPRAZOLE MAGNESIUM
     Indication: GASTROOESOPHAGEAL REFLUX DISEASE
     Route: 048
     Dates: start: 20140902
  21. NEXIUM [Suspect]
     Active Substance: ESOMEPRAZOLE MAGNESIUM
     Indication: GASTROOESOPHAGEAL REFLUX DISEASE
     Route: 048
     Dates: start: 20140902
  22. PROTONIX [Suspect]
     Active Substance: PANTOPRAZOLE SODIUM
     Indication: DYSPEPSIA
     Route: 065
  23. HUMIRA [Concomitant]
     Active Substance: ADALIMUMAB
     Route: 065
  24. ZYRTEC [Concomitant]
     Active Substance: CETIRIZINE HYDROCHLORIDE
     Route: 065
  25. ASPIRIN. [Concomitant]
     Active Substance: ASPIRIN
     Route: 065
  26. PERI COLACE [Concomitant]
     Route: 065
  27. PREVACID [Suspect]
     Active Substance: LANSOPRAZOLE
     Indication: DYSPEPSIA
     Route: 065
  28. PROTONIX [Suspect]
     Active Substance: PANTOPRAZOLE SODIUM
     Indication: GASTROOESOPHAGEAL REFLUX DISEASE
     Route: 065
  29. JANUVIA [Concomitant]
     Active Substance: SITAGLIPTIN PHOSPHATE
     Indication: DIABETES MELLITUS
     Route: 065
  30. GABAPENTIN. [Concomitant]
     Active Substance: GABAPENTIN
     Route: 065
  31. NEXIUM 24HR [Suspect]
     Active Substance: ESOMEPRAZOLE MAGNESIUM
     Indication: GASTROOESOPHAGEAL REFLUX DISEASE
     Dosage: 2 CAPSULES PER DAY
     Route: 048
  32. PROTONIX [Suspect]
     Active Substance: PANTOPRAZOLE SODIUM
     Indication: GASTROOESOPHAGEAL REFLUX DISEASE
     Dosage: GENERIC
     Route: 065
  33. PROTONIX [Suspect]
     Active Substance: PANTOPRAZOLE SODIUM
     Indication: DYSPEPSIA
     Dosage: GENERIC
     Route: 065
  34. ZANTAC [Concomitant]
     Active Substance: RANITIDINE HYDROCHLORIDE
     Indication: GASTROOESOPHAGEAL REFLUX DISEASE
     Route: 065
  35. NORVASC [Concomitant]
     Active Substance: AMLODIPINE BESYLATE
     Indication: HYPERTENSION
     Route: 065
  36. CHANTIX [Concomitant]
     Active Substance: VARENICLINE TARTRATE
     Route: 065
  37. RANITIDINE. [Concomitant]
     Active Substance: RANITIDINE
     Route: 065
  38. ENBREL [Concomitant]
     Active Substance: ETANERCEPT
     Route: 065
  39. ALKA-SELTZER [Concomitant]
     Active Substance: ANHYDROUS CITRIC ACID\ASPIRIN\SODIUM BICARBONATE
     Route: 065

REACTIONS (5)
  - Nephropathy [Not Recovered/Not Resolved]
  - Rebound acid hypersecretion [Unknown]
  - Acute kidney injury [Unknown]
  - Renal failure [Unknown]
  - Chronic kidney disease [Unknown]

NARRATIVE: CASE EVENT DATE: 2015
